FAERS Safety Report 16958493 (Version 3)
Quarter: 2019Q4

REPORT INFORMATION
  Report Type: Spontaneous
  Country: US (occurrence: US)
  Receive Date: 20191024
  Receipt Date: 20191122
  Transmission Date: 20200122
  Serious: Yes (Other)
  Sender: FDA-Public Use
  Company Number: US-FRESENIUS KABI-FK201911620

PATIENT
  Age: 13 Month
  Sex: Male
  Weight: 8.49 kg

DRUGS (5)
  1. OMEGAVEN [Suspect]
     Active Substance: FISH OIL
     Indication: PARENTERAL NUTRITION
     Dosage: 1 G/KG/DAY
     Route: 042
     Dates: start: 20190710, end: 20191023
  2. AMINO ACIDS NOS [Concomitant]
     Active Substance: AMINO ACIDS, SOURCE UNSPECIFIED
     Indication: PRODUCT USED FOR UNKNOWN INDICATION
     Dosage: UNKNOWN
     Route: 065
     Dates: start: 20190710
  3. ASCORBIC ACID/PYRIDOXAL PHOSPHATE/BIOTIN/FOLIC ACID/COLECALCIFEROL/CALCIUM PANTOTHENATE/ASCORBYL PAL [Concomitant]
     Indication: PRODUCT USED FOR UNKNOWN INDICATION
     Dosage: 5ML
     Route: 065
  4. SMOFLIPID [Suspect]
     Active Substance: FISH OIL\MEDIUM-CHAIN TRIGLYCERIDES\OLIVE OIL\SOYBEAN OIL
     Dosage: UNKNOWN
     Route: 042
     Dates: start: 201910
  5. SMOFLIPID [Suspect]
     Active Substance: FISH OIL\MEDIUM-CHAIN TRIGLYCERIDES\OLIVE OIL\SOYBEAN OIL
     Indication: PARENTERAL NUTRITION
     Dosage: 2-3 G/KG/DAY
     Route: 042
     Dates: start: 201901, end: 201907

REACTIONS (2)
  - Prothrombin time prolonged [Unknown]
  - Cholestasis [Recovered/Resolved]

NARRATIVE: CASE EVENT DATE: 20190520
